FAERS Safety Report 5785768-4 (Version None)
Quarter: 2008Q2

REPORT INFORMATION
  Report Type: 
  Country: None (occurrence: None)
  Receive Date: 20080605
  Receipt Date: 20080225
  Transmission Date: 20081010
  Serious: No
  Sender: FDA-Public Use
  Company Number: A0711471A

PATIENT
  Age: 50 Year
  Sex: Female

DRUGS (1)
  1. ALLI [Suspect]
     Dates: start: 20080215, end: 20080222

REACTIONS (7)
  - CHANGE OF BOWEL HABIT [None]
  - FAECES HARD [None]
  - FATIGUE [None]
  - JOINT STIFFNESS [None]
  - PAIN [None]
  - RASH [None]
  - RECTAL DISCHARGE [None]
